FAERS Safety Report 9842735 (Version 1)
Quarter: 2014Q1

REPORT INFORMATION
  Report Type: Spontaneous
  Country: CO (occurrence: CO)
  Receive Date: 20140124
  Receipt Date: 20140124
  Transmission Date: 20141002
  Serious: Yes (Other)
  Sender: FDA-Public Use
  Company Number: CO-PFIZER INC-2014022592

PATIENT
  Sex: Female

DRUGS (1)
  1. GENOTROPIN [Suspect]
     Dosage: UNK
     Route: 058

REACTIONS (1)
  - Terminal state [Not Recovered/Not Resolved]
